FAERS Safety Report 6227198-7 (Version None)
Quarter: 2009Q2

REPORT INFORMATION
  Report Type: 
  Country: None (occurrence: None)
  Receive Date: 20090610
  Receipt Date: 20090528
  Transmission Date: 20091009
  Serious: Yes (Other)
  Sender: FDA-Public Use
  Company Number: CH-WYE-H09554609

PATIENT
  Age: 45 Year
  Sex: Male

DRUGS (5)
  1. ZURCAL (PANTOPRAZOLE, TABLET, DELAYED RELEASE) [Suspect]
     Indication: NAUSEA
     Dosage: 20 MG 1X PER 1 DAY ORAL
     Route: 048
     Dates: start: 20090508, end: 20090511
  2. ZURCAL (PANTOPRAZOLE, TABLET, DELAYED RELEASE) [Suspect]
     Indication: VOMITING
     Dosage: 20 MG 1X PER 1 DAY ORAL
     Route: 048
     Dates: start: 20090508, end: 20090511
  3. INFLAMAC (DICLOFENAC SODIUM) [Suspect]
     Indication: MENINGITIS VIRAL
     Dosage: 150 MG 1X PER 1 DAY ORAL
     Route: 048
     Dates: start: 20090508, end: 20090511
  4. ZOVIRAX [Suspect]
     Indication: MENINGITIS VIRAL
     Dosage: 3 G 1X PER 1 DAY INTRAVENOUS
     Route: 042
     Dates: start: 20090508, end: 20090511
  5. PRIMPERAN TAB [Concomitant]

REACTIONS (1)
  - RENAL FAILURE [None]
